FAERS Safety Report 13002223 (Version 2)
Quarter: 2017Q1

REPORT INFORMATION
  Report Type: Spontaneous
  Country: US (occurrence: US)
  Receive Date: 20161206
  Receipt Date: 20170123
  Transmission Date: 20170428
  Serious: No
  Sender: FDA-Public Use
  Company Number: US-GLAXOSMITHKLINE-US2016179146

PATIENT
  Sex: Female

DRUGS (3)
  1. VENTOLIN HFA [Suspect]
     Active Substance: ALBUTEROL SULFATE
     Indication: SINUS DISORDER
  2. VENTOLIN HFA [Suspect]
     Active Substance: ALBUTEROL SULFATE
     Indication: WHEEZING
  3. VENTOLIN HFA [Suspect]
     Active Substance: ALBUTEROL SULFATE
     Indication: COUGH
     Dosage: 2 PUFF(S), PRN
     Route: 055

REACTIONS (4)
  - Drug dose omission [Unknown]
  - Incorrect product storage [Unknown]
  - Device use error [Unknown]
  - Product use issue [Unknown]
